FAERS Safety Report 8763774 (Version 2)
Quarter: 2013Q1

REPORT INFORMATION
  Report Type: Spontaneous
  Country: FR (occurrence: FR)
  Receive Date: 20120831
  Receipt Date: 20130212
  Transmission Date: 20140127
  Serious: Yes (Other)
  Sender: FDA-Public Use
  Company Number: PHHY2012FR074759

PATIENT
  Sex: Female

DRUGS (2)
  1. FEMARA [Suspect]
     Indication: BREAST CANCER
     Dosage: 1 DF, DAILY
     Route: 065
     Dates: start: 20120603
  2. COZAAR [Concomitant]
     Dosage: 1 DF, DAILY
     Route: 065

REACTIONS (9)
  - Ear injury [Unknown]
  - Gingival pain [Unknown]
  - Peripheral artery stenosis [Unknown]
  - Pain in extremity [Unknown]
  - Blood pressure increased [Unknown]
  - Temporomandibular joint syndrome [Unknown]
  - Pain in jaw [Unknown]
  - Muscle spasms [Recovered/Resolved]
  - Dental caries [Unknown]
